FAERS Safety Report 6612438-2 (Version None)
Quarter: 2010Q1

REPORT INFORMATION
  Report Type: 
  Country: None (occurrence: None)
  Receive Date: 20100303
  Receipt Date: 20100222
  Transmission Date: 20100710
  Serious: Yes (Hospitalization, Other)
  Sender: FDA-Public Use
  Company Number: PHHY2009US58369

PATIENT

DRUGS (2)
  1. EXJADE [Suspect]
     Dosage: UNK
     Dates: start: 20090801
  2. CITRIC ACID [Concomitant]
     Indication: ANAEMIA

REACTIONS (1)
  - FRACTURE [None]
